FAERS Safety Report 18553042 (Version 2)
Quarter: 2021Q1

REPORT INFORMATION
  Report Type: Spontaneous
  Country: DE (occurrence: DE)
  Receive Date: 20201127
  Receipt Date: 20210122
  Transmission Date: 20210419
  Serious: Yes (Hospitalization, Other)
  Sender: FDA-Public Use
  Company Number: DE-ALXN-A202017192

PATIENT
  Age: 68 Year
  Sex: Female

DRUGS (1)
  1. SOLIRIS [Suspect]
     Active Substance: ECULIZUMAB
     Indication: PAROXYSMAL NOCTURNAL HAEMOGLOBINURIA
     Dosage: 900 MG, Q2W
     Dates: start: 2007

REACTIONS (4)
  - SARS-CoV-2 test positive [Unknown]
  - Haemolytic anaemia [Recovered/Resolved]
  - Pancytopenia [Unknown]
  - COVID-19 [Unknown]

NARRATIVE: CASE EVENT DATE: 2020
